FAERS Safety Report 25668121 (Version 1)
Quarter: 2025Q3

REPORT INFORMATION
  Report Type: Report from Study
  Country: EU (occurrence: EU)
  Receive Date: 20250812
  Receipt Date: 20250812
  Transmission Date: 20251020
  Serious: Yes (Other)
  Sender: CELLTRION
  Company Number: EU-JNJFOC-20250605489

PATIENT

DRUGS (5)
  1. INFLIXIMAB [Suspect]
     Active Substance: INFLIXIMAB
     Indication: Inflammatory bowel disease
     Route: 041
  2. ADALIMUMAB [Suspect]
     Active Substance: ADALIMUMAB
     Indication: Inflammatory bowel disease
     Route: 065
  3. ADALIMUMAB [Suspect]
     Active Substance: ADALIMUMAB
  4. GOLIMUMAB [Suspect]
     Active Substance: GOLIMUMAB
     Indication: Inflammatory bowel disease
     Route: 058
  5. CERTOLIZUMAB [Suspect]
     Active Substance: CERTOLIZUMAB
     Indication: Inflammatory bowel disease
     Route: 065

REACTIONS (4)
  - Antiphospholipid antibodies positive [Unknown]
  - Abortion spontaneous [Unknown]
  - Antinuclear antibody positive [Unknown]
  - Exposure during pregnancy [Recovered/Resolved]
